FAERS Safety Report 5308773-0 (Version None)
Quarter: 2007Q2

REPORT INFORMATION
  Report Type: 
  Country: None (occurrence: None)
  Receive Date: 20070426
  Receipt Date: 20070418
  Transmission Date: 20071010
  Serious: Yes (Hospitalization)
  Sender: FDA-Public Use
  Company Number: DE-ABBOTT-07P-062-0365500-00

PATIENT
  Sex: Female
  Weight: 73 kg

DRUGS (8)
  1. ZEMPLAR [Suspect]
     Indication: HYPERPARATHYROIDISM SECONDARY
     Route: 042
     Dates: start: 20070308
  2. ESOMEPRAZOLE MAGNESIUM [Concomitant]
     Indication: GASTRITIS
     Route: 048
     Dates: start: 20050906, end: 20070405
  3. EFEROX [Concomitant]
     Indication: HYPOTHYROIDISM
     Route: 048
     Dates: start: 20040429, end: 20070405
  4. VOTUM [Concomitant]
     Indication: HYPERTENSION
     Route: 048
     Dates: start: 20041111, end: 20070405
  5. ZOCOR [Concomitant]
     Indication: HYPERCHOLESTEROLAEMIA
     Route: 048
     Dates: start: 20041019, end: 20070405
  6. ANTIPHOSPHAT [Concomitant]
     Indication: HYPERPHOSPHATAEMIA
     Route: 048
     Dates: start: 20070323, end: 20070405
  7. METOPROLOL SUCCINATE [Concomitant]
     Indication: HYPERTENSION
     Route: 048
     Dates: start: 20060815, end: 20070405
  8. DARBEPOETIN ALFA [Concomitant]
     Indication: ANAEMIA
     Route: 042
     Dates: start: 20070215, end: 20070405

REACTIONS (4)
  - HEPATIC ENZYME INCREASED [None]
  - PYREXIA [None]
  - SHUNT INFECTION [None]
  - SUBILEUS [None]
